FAERS Safety Report 6997535-4 (Version None)
Quarter: 2010Q3

REPORT INFORMATION
  Report Type: 
  Country: None (occurrence: None)
  Receive Date: 20100918
  Receipt Date: 20091110
  Transmission Date: 20110219
  Serious: No
  Sender: FDA-Public Use
  Company Number: US-WYE-H12072609

PATIENT
  Sex: Female

DRUGS (9)
  1. PRISTIQ [Suspect]
     Indication: DEPRESSION
     Route: 048
     Dates: start: 20081101
  2. CYCLOBENZAPRINE [Concomitant]
  3. LEVOTHYROXINE [Concomitant]
  4. IBUPROFEN [Concomitant]
  5. CYMBALTA [Concomitant]
  6. TRAMADOL [Concomitant]
  7. DARVOCET-N 100 [Concomitant]
  8. DEPAKOTE [Concomitant]
  9. TYLENOL (CAPLET) [Concomitant]

REACTIONS (2)
  - DRUG INEFFECTIVE [None]
  - MEDICATION RESIDUE [None]
